FAERS Safety Report 6611386-1 (Version None)
Quarter: 2010Q1

REPORT INFORMATION
  Report Type: 
  Country: None (occurrence: None)
  Receive Date: 20100303
  Receipt Date: 20100217
  Transmission Date: 20100710
  Serious: Yes (Other)
  Sender: FDA-Public Use
  Company Number: CL-BAYER-201013927GPV

PATIENT
  Age: 36 Year
  Sex: Female
  Weight: 46 kg

DRUGS (17)
  1. CAMPATH [Suspect]
     Indication: INTESTINAL TRANSPLANT
     Dates: start: 20041101
  2. CAMPATH [Suspect]
     Dosage: ON DAY 3
     Dates: start: 20041101
  3. PREDNISONE [Suspect]
     Indication: IMMUNOSUPPRESSION
     Dates: start: 20040101
  4. METHYLPREDNISOLONE [Suspect]
     Indication: INTESTINAL TRANSPLANT
     Dates: start: 20041101
  5. PROGRAF [Suspect]
     Indication: INTESTINAL TRANSPLANT
     Dates: start: 20040101
  6. RAPAMUNE [Suspect]
     Indication: INTESTINAL TRANSPLANT
     Dates: start: 20040101
  7. RAPAMUNE [Suspect]
     Dosage: REDUCED DOSE
  8. MYFORTIC [Suspect]
     Indication: INTESTINAL TRANSPLANT
     Dates: start: 20040101
  9. CEFTRIAXONE (ROCEPHIN) [Concomitant]
     Indication: ANTIBIOTIC PROPHYLAXIS
     Dates: start: 20041101, end: 20040101
  10. METRONIDAZOLE [Concomitant]
     Indication: ANTIBIOTIC PROPHYLAXIS
     Dates: start: 20041101, end: 20040101
  11. VANCOMYCIN [Concomitant]
     Indication: ANTIBIOTIC PROPHYLAXIS
     Dates: start: 20041101, end: 20040101
  12. GANCICLOVIR [Concomitant]
     Indication: ANTIVIRAL PROPHYLAXIS
     Route: 042
     Dates: start: 20041101, end: 20040101
  13. CYTOTEC [Concomitant]
     Indication: ANTIVIRAL PROPHYLAXIS
     Dates: start: 20040101
  14. CANCIDAS [Concomitant]
     Indication: ANTIFUNGAL PROPHYLAXIS
     Dates: start: 20041101, end: 20040101
  15. VFEND [Concomitant]
     Indication: ANTIFUNGAL PROPHYLAXIS
     Dates: start: 20040101
  16. HEPARIN [Concomitant]
     Indication: ANTICOAGULANT THERAPY
     Dates: start: 20041101, end: 20040101
  17. NEO-SINTROM [Concomitant]
     Indication: ANTICOAGULANT THERAPY

REACTIONS (8)
  - GASTROINTESTINAL HAEMORRHAGE [None]
  - HERPES ZOSTER [None]
  - HYPERTRIGLYCERIDAEMIA [None]
  - INTESTINAL ULCER [None]
  - NEPHROPATHY TOXIC [None]
  - PNEUMONIA LEGIONELLA [None]
  - RENAL FAILURE [None]
  - TRANSPLANT REJECTION [None]
